FAERS Safety Report 10019619 (Version 1)
Quarter: 2014Q1

REPORT INFORMATION
  Report Type: Spontaneous
  Country: ES (occurrence: ES)
  Receive Date: 20140318
  Receipt Date: 20140318
  Transmission Date: 20141002
  Serious: Yes (Death)
  Sender: FDA-Public Use
  Company Number: ES-PFIZER INC-2014077487

PATIENT
  Age: 57 Year
  Sex: Female

DRUGS (11)
  1. PRISTIQ [Suspect]
     Indication: DEPRESSION
     Dosage: 50 MG, 1X/DAY
     Route: 048
     Dates: start: 20140103, end: 20140108
  2. METAMIZOLE [Concomitant]
     Dosage: UNK, AS NEEDED
     Dates: end: 20140108
  3. PARACETAMOL [Concomitant]
     Dosage: UNK
     Route: 048
     Dates: end: 20140108
  4. LACTULOSE [Concomitant]
     Dosage: 20 MG, 1X/DAY
     Route: 048
     Dates: end: 20140108
  5. OMEPRAZOLE [Concomitant]
     Dosage: 20 MG, 1X/DAY
     Route: 048
     Dates: end: 20140108
  6. ATENOLOL [Concomitant]
     Dosage: 25 MG, 1X/DAY
     Route: 048
     Dates: end: 20140108
  7. AMLODIPINE [Concomitant]
     Dosage: 5 MG, 1X/DAY
     Route: 048
     Dates: end: 20140108
  8. ANTABUS [Concomitant]
     Indication: ALCOHOLISM
     Dosage: 250 MG, 1X/DAY
     Route: 048
     Dates: start: 20131203, end: 20140108
  9. BENERVA [Concomitant]
     Indication: ALCOHOLISM
     Dosage: 300 MG, 1X/DAY
     Route: 048
     Dates: start: 20130127, end: 20140108
  10. PLACINORAL [Concomitant]
     Indication: INSOMNIA
     Dosage: 2 MG, 1X/DAY
     Route: 048
     Dates: start: 20131203, end: 20140108
  11. TERBASMIN TURBUHALER [Concomitant]
     Dosage: UNK, AS NEEDED
     Route: 055
     Dates: end: 20140108

REACTIONS (1)
  - Gastrointestinal haemorrhage [Fatal]
